FAERS Safety Report 21437232 (Version 1)
Quarter: 2022Q4

REPORT INFORMATION
  Report Type: Report from Study
  Country: BR (occurrence: BR)
  Receive Date: 20221010
  Receipt Date: 20221010
  Transmission Date: 20230113
  Serious: Yes (Hospitalization)
  Sender: FDA-Public Use
  Company Number: BR-BIOGEN-2022BI01159886

PATIENT
  Age: 31 Year
  Sex: Female
  Weight: 66 kg

DRUGS (2)
  1. TECFIDERA [Suspect]
     Active Substance: DIMETHYL FUMARATE
     Indication: Multiple sclerosis
     Route: 050
     Dates: start: 202011, end: 202201
  2. PURAN (LEVOTHYROXINE SODIUM) [Concomitant]
     Indication: Hypothyroidism
     Route: 050
     Dates: start: 2012

REACTIONS (2)
  - Treatment failure [Not Recovered/Not Resolved]
  - Multiple sclerosis [Not Recovered/Not Resolved]

NARRATIVE: CASE EVENT DATE: 20211201
